FAERS Safety Report 7884438-6 (Version None)
Quarter: 2011Q4

REPORT INFORMATION
  Report Type: 
  Country: None (occurrence: None)
  Receive Date: 20111102
  Receipt Date: 20110729
  Transmission Date: 20120403
  Serious: Yes (Other)
  Sender: FDA-Public Use
  Company Number: US-ASTRAZENECA-2011SE45677

PATIENT

DRUGS (3)
  1. VANDETANIB [Suspect]
     Indication: BRAIN STEM GLIOMA
     Dosage: FOR MAX 2 YEARS
     Route: 048
  2. DEXAMETHASONE [Concomitant]
     Dosage: HIGH DOSE
  3. RADIOTHERAPY [Concomitant]
     Indication: BRAIN STEM GLIOMA
     Dosage: TOTAL DOSE OF 54 GY

REACTIONS (3)
  - DIARRHOEA [None]
  - HYPERTENSION [None]
  - POSTERIOR REVERSIBLE ENCEPHALOPATHY SYNDROME [None]
